FAERS Safety Report 5252583-X (Version None)
Quarter: 2007Q1

REPORT INFORMATION
  Report Type: 
  Country: None (occurrence: None)
  Receive Date: 20070227
  Receipt Date: 20070215
  Transmission Date: 20070707
  Serious: Yes (Other)
  Sender: FDA-Public Use
  Company Number: GXKR2007CH01748

PATIENT
  Age: 75 Year
  Sex: Male

DRUGS (8)
  1. OMEPRAZOLE [Suspect]
     Dosage: 20 MG, QD, ORAL
     Route: 048
  2. NAVELBINE [Suspect]
     Indication: NEOPLASM MALIGNANT
     Dates: start: 20060406, end: 20060412
  3. CARBOPLATIN [Suspect]
     Indication: NEOPLASM MALIGNANT
     Dates: start: 20060406, end: 20060412
  4. GEMZAR [Suspect]
     Indication: NEOPLASM MALIGNANT
     Dosage: ONCE/SINGLE, INTRAVENOUS
     Route: 042
     Dates: start: 20060518
  5. DILTIAZEM HYDROCHLORIDE [Suspect]
     Dosage: 90 MG, QD, ORAL
     Route: 048
  6. ASPIRIN [Concomitant]
  7. COVERSUM (PERINDOPRIL) [Concomitant]
  8. NITRODERM [Concomitant]

REACTIONS (7)
  - AGRANULOCYTOSIS [None]
  - COLONOSCOPY ABNORMAL [None]
  - DIARRHOEA [None]
  - DIARRHOEA HAEMORRHAGIC [None]
  - MUCOSAL ULCERATION [None]
  - PYREXIA [None]
  - VOMITING [None]
